FAERS Safety Report 9921366 (Version 4)
Quarter: 2014Q2

REPORT INFORMATION
  Report Type: Report from Study
  Country: US (occurrence: US)
  Receive Date: 20140225
  Receipt Date: 20140402
  Transmission Date: 20141212
  Serious: Yes (Hospitalization)
  Sender: FDA-Public Use
  Company Number: US-JNJFOC-20140213681

PATIENT
  Age: 18 Year
  Sex: Male
  Weight: 61.5 kg

DRUGS (15)
  1. REMICADE [Suspect]
     Indication: CROHN^S DISEASE
     Dosage: 2NF INFUSION
     Route: 042
     Dates: start: 20130220
  2. REMICADE [Suspect]
     Indication: CROHN^S DISEASE
     Route: 042
     Dates: start: 20140111
  3. METHOTREXATE [Concomitant]
     Route: 065
  4. PROBIOTICS [Concomitant]
     Route: 065
  5. HYDROXYZINE [Concomitant]
     Route: 065
  6. FOLIC ACID [Concomitant]
     Route: 065
  7. FERROUS SULFATE [Concomitant]
     Route: 065
  8. ALBUTEROL [Concomitant]
     Route: 065
  9. ANTIBIOTICS [Concomitant]
     Route: 065
  10. OMEPRAZOLE [Concomitant]
     Route: 065
  11. ONDANSETRON [Concomitant]
     Route: 065
  12. OXYCODONE [Concomitant]
     Route: 065
  13. VITAMIN D [Concomitant]
     Route: 065
  14. CALCIUM CARBONATE [Concomitant]
     Route: 065
  15. AMYLASE/LIPASE/PROTEASE [Concomitant]
     Route: 065

REACTIONS (1)
  - Pancreatitis [Recovered/Resolved]
